FAERS Safety Report 14146652 (Version 1)
Quarter: 2017Q4

REPORT INFORMATION
  Report Type: Spontaneous
  Country: US (occurrence: US)
  Receive Date: 20171031
  Receipt Date: 20171031
  Transmission Date: 20180321
  Serious: No
  Sender: FDA-Public Use
  Company Number: US-PERRIGO-16US022164

PATIENT
  Age: 21 Year
  Sex: Female

DRUGS (2)
  1. UNISOM SLEEPTABS [Suspect]
     Active Substance: DOXYLAMINE SUCCINATE
     Indication: VOMITING IN PREGNANCY
     Dosage: 25 MG, SINGLE
     Route: 048
     Dates: start: 20161117, end: 20161117
  2. UNISOM SLEEPTABS [Suspect]
     Active Substance: DOXYLAMINE SUCCINATE
     Dosage: 12.5 MG, SINGLE
     Route: 048
     Dates: start: 20161118, end: 20161118

REACTIONS (3)
  - Therapeutic response unexpected [Unknown]
  - Maternal exposure during pregnancy [Unknown]
  - Off label use [Unknown]

NARRATIVE: CASE EVENT DATE: 20161117
